FAERS Safety Report 14533797 (Version 1)
Quarter: 2018Q1

REPORT INFORMATION
  Report Type: Spontaneous
  Country: US (occurrence: US)
  Receive Date: 20180215
  Receipt Date: 20180215
  Transmission Date: 20180509
  Serious: Yes (Other)
  Sender: FDA-Public Use
  Company Number: US-AMGEN-USASP2018018875

PATIENT
  Age: 83 Year
  Sex: Female

DRUGS (5)
  1. ARANESP [Suspect]
     Active Substance: DARBEPOETIN ALFA
     Indication: HAEMOGLOBIN ABNORMAL
     Dosage: UNK UNK, QMO
     Route: 065
     Dates: start: 2016
  2. CALCIUM ACETATE. [Suspect]
     Active Substance: CALCIUM ACETATE
     Indication: BLOOD PHOSPHORUS INCREASED
     Dosage: UNK
     Route: 065
  3. VITAMIN D [Concomitant]
     Active Substance: CHOLECALCIFEROL
     Dosage: UNK
  4. IRON [Concomitant]
     Active Substance: IRON
  5. VITAMINS [Concomitant]
     Active Substance: VITAMINS

REACTIONS (14)
  - Thirst [Not Recovered/Not Resolved]
  - Wrist fracture [Recovering/Resolving]
  - Muscular weakness [Not Recovered/Not Resolved]
  - Diplopia [Recovering/Resolving]
  - Urine output increased [Not Recovered/Not Resolved]
  - Abdominal discomfort [Not Recovered/Not Resolved]
  - Fall [Unknown]
  - Head injury [Not Recovered/Not Resolved]
  - Eye swelling [Recovering/Resolving]
  - Influenza [Not Recovered/Not Resolved]
  - Blood phosphorus increased [Recovering/Resolving]
  - Blood creatinine increased [Not Recovered/Not Resolved]
  - Gait disturbance [Not Recovered/Not Resolved]
  - Headache [Not Recovered/Not Resolved]

NARRATIVE: CASE EVENT DATE: 201704
